FAERS Safety Report 25007320 (Version 1)
Quarter: 2025Q1

REPORT INFORMATION
  Report Type: Report from Study
  Country: US (occurrence: US)
  Receive Date: 20250225
  Receipt Date: 20250225
  Transmission Date: 20250409
  Serious: Yes (Other)
  Sender: RECORDATI
  Company Number: US-RECORDATI RARE DISEASE INC.-2025001163

PATIENT
  Age: 33 Year
  Sex: Female
  Weight: 90.703 kg

DRUGS (15)
  1. ISTURISA [Suspect]
     Active Substance: OSILODROSTAT PHOSPHATE
     Indication: Cushing^s syndrome
     Dosage: 2 MG, BID  (1 MG TABLET)
     Route: 048
     Dates: end: 202502
  2. ISTURISA [Suspect]
     Active Substance: OSILODROSTAT PHOSPHATE
     Dosage: 5 MG, BID (5 MG TABLET)
     Route: 048
     Dates: end: 202502
  3. CALCIUM\VITAMIN D [Concomitant]
     Active Substance: CALCIUM\VITAMIN D
     Indication: Product used for unknown indication
     Dosage: 600-10, QD (TABLET)
     Route: 048
     Dates: start: 20220410
  4. CAPECITABINE [Concomitant]
     Active Substance: CAPECITABINE
     Indication: Product used for unknown indication
     Dosage: 500 MG, BID (3 CAPSULE BID)
     Route: 048
     Dates: start: 20230410
  5. LEXAPRO [Concomitant]
     Active Substance: ESCITALOPRAM OXALATE
     Indication: Product used for unknown indication
     Dosage: 10 MG, QD (TABLET)
     Route: 048
     Dates: start: 20220410
  6. METFORMIN HYDROCHLORIDE [Concomitant]
     Active Substance: METFORMIN HYDROCHLORIDE
     Indication: Product used for unknown indication
     Dosage: 500 MG, BID (TABLET)
     Route: 048
     Dates: start: 20220410
  7. METOPROLOL SUCCINATE [Concomitant]
     Active Substance: METOPROLOL SUCCINATE
     Indication: Product used for unknown indication
     Dosage: 25 MG, QD (EXTENDED RELEASE TABLET)
     Route: 048
     Dates: start: 20220410
  8. ADULT MULTIVITAMIN [Concomitant]
     Indication: Product used for unknown indication
     Dosage: 1 TABLET, QD (MINERALS)
     Route: 048
     Dates: start: 20220410
  9. OZEMPIC [Concomitant]
     Active Substance: SEMAGLUTIDE
     Indication: Product used for unknown indication
     Dosage: 8MG/3ML, QW (SOLUTION)
     Route: 058
     Dates: start: 20220410
  10. POTASSIUM CHLORIDE EXTENDED RELEASE [Concomitant]
     Active Substance: POTASSIUM CHLORIDE
     Indication: Product used for unknown indication
     Dosage: 20 MILLIEQUIVALENT, QD (CRYS ER TABLET)
     Route: 048
     Dates: start: 20220410
  11. SANDOSTATIN [Concomitant]
     Active Substance: OCTREOTIDE ACETATE
     Indication: Product used for unknown indication
     Dosage: 500 MCG/ML, Q2W (EVERY 2 WEEKS)
     Dates: start: 20220410
  12. TEMOZOLOMIDE [Concomitant]
     Active Substance: TEMOZOLOMIDE
     Indication: Product used for unknown indication
     Dosage: 100 MG, Q6H (4 TIME A DAY) CAPSULE
     Route: 048
     Dates: start: 20230410
  13. TRETINOIN [Concomitant]
     Active Substance: TRETINOIN
     Indication: Product used for unknown indication
     Route: 061
     Dates: start: 20220410
  14. XGEVA [Concomitant]
     Active Substance: DENOSUMAB
     Indication: Product used for unknown indication
     Dosage: 120 MG, QM (SOLUTION)
     Route: 058
     Dates: start: 20220410
  15. ZOFRAN [Concomitant]
     Active Substance: ONDANSETRON HYDROCHLORIDE
     Indication: Product used for unknown indication
     Route: 048
     Dates: start: 20230410

REACTIONS (1)
  - Adrenalectomy [Unknown]

NARRATIVE: CASE EVENT DATE: 20250205
